FAERS Safety Report 4864477-X (Version None)
Quarter: 2005Q4

REPORT INFORMATION
  Report Type: 
  Country: None (occurrence: None)
  Receive Date: 20051222
  Receipt Date: 20051013
  Transmission Date: 20060501
  Serious: Yes (Hospitalization)
  Sender: FDA-Public Use
  Company Number: FR-BRISTOL-MYERS SQUIBB COMPANY-13146592

PATIENT
  Age: 35 Year
  Sex: Male

DRUGS (5)
  1. MODECATE INJ 25 MG/ML [Suspect]
     Indication: SCHIZOPHRENIA
     Route: 030
     Dates: start: 20050808, end: 20050808
  2. TERCIAN [Suspect]
     Route: 048
     Dates: end: 20050101
  3. DEPAMIDE [Concomitant]
     Route: 048
  4. LEPTICUR [Concomitant]
     Route: 048
  5. DEROXAT [Concomitant]
     Route: 048

REACTIONS (2)
  - COMA [None]
  - NEUROLEPTIC MALIGNANT SYNDROME [None]
